FAERS Safety Report 5206612-X (Version None)
Quarter: 2006Q4

REPORT INFORMATION
  Report Type: 
  Country: None (occurrence: None)
  Receive Date: 20061026
  Receipt Date: 20060719
  Transmission Date: 20070319
  Serious: No
  Sender: FDA-Public Use
  Company Number: 2006090531

PATIENT
  Age: 46 Year
  Sex: Female
  Weight: 30.6178 kg

DRUGS (12)
  1. LYRICA [Suspect]
     Indication: PAIN
     Dosage: 150 MG (50 MG, 3 IN 1 D)
     Dates: start: 20060701
  2. OXYCONTIN [Concomitant]
  3. OXYCODONE HCL [Concomitant]
  4. CYCLOBENZAPRINE HCL [Concomitant]
  5. DIOVAN HCT [Concomitant]
  6. SKELAXIN [Concomitant]
  7. MONTELUKAST SODIUM (MONTELUKAST SODIUM) [Concomitant]
  8. PROVIGIL [Concomitant]
  9. PARAFON FORTE (CHLORZOXAZONE, PARACETAMOL) [Concomitant]
  10. VITAMIN D [Concomitant]
  11. CALCITRIOL [Concomitant]
  12. VITAMIN B12 [Concomitant]

REACTIONS (5)
  - CONFUSIONAL STATE [None]
  - EMOTIONAL DISORDER [None]
  - FEELING ABNORMAL [None]
  - FEELING DRUNK [None]
  - THERAPEUTIC RESPONSE DECREASED [None]
